FAERS Safety Report 24707322 (Version 1)
Quarter: 2024Q4

REPORT INFORMATION
  Report Type: Spontaneous
  Country: US (occurrence: None)
  Receive Date: 20241206
  Receipt Date: 20241206
  Transmission Date: 20250115
  Serious: Yes (Hospitalization)
  Sender: Public
  Company Number: None

PATIENT
  Age: 51 Year
  Sex: Female
  Weight: 90.2 kg

DRUGS (2)
  1. HYDROCORTISONE [Suspect]
     Active Substance: HYDROCORTISONE
     Indication: Adrenal insufficiency
  2. FLUDROCORTISONE [Concomitant]
     Active Substance: FLUDROCORTISONE

REACTIONS (9)
  - Dizziness [None]
  - Headache [None]
  - Dehydration [None]
  - Adrenocortical insufficiency acute [None]
  - Paranoia [None]
  - Hallucination, auditory [None]
  - Disorientation [None]
  - Amnesia [None]
  - Psychotic disorder [None]

NARRATIVE: CASE EVENT DATE: 20241008
